FAERS Safety Report 12704534 (Version 1)
Quarter: 2016Q3

REPORT INFORMATION
  Report Type: Spontaneous
  Country: US (occurrence: US)
  Receive Date: 20160831
  Receipt Date: 20160831
  Transmission Date: 20161109
  Serious: No
  Sender: FDA-Public Use
  Company Number: US-SA-2016SA002269

PATIENT
  Age: 73 Year
  Sex: Female

DRUGS (9)
  1. AVAPRO [Suspect]
     Active Substance: IRBESARTAN
     Route: 065
  2. ATARAX [Suspect]
     Active Substance: HYDROXYZINE\HYDROXYZINE HYDROCHLORIDE
     Route: 065
  3. NEURONTIN [Suspect]
     Active Substance: GABAPENTIN
     Route: 065
  4. APAP [Suspect]
     Active Substance: ACETAMINOPHEN
     Route: 065
  5. TRAMADOL. [Suspect]
     Active Substance: TRAMADOL
     Route: 065
  6. CODEINE [Suspect]
     Active Substance: CODEINE
     Route: 065
  7. ZESTRIL [Suspect]
     Active Substance: LISINOPRIL
     Route: 065
  8. FORMALDEHYDE SOLUTION [Suspect]
     Active Substance: FORMALDEHYDE
     Route: 065
  9. HYDROCODONE [Suspect]
     Active Substance: HYDROCODONE
     Route: 065

REACTIONS (1)
  - Hypersensitivity [Unknown]

NARRATIVE: CASE EVENT DATE: 20160203
